FAERS Safety Report 9772201 (Version 3)
Quarter: 2014Q1

REPORT INFORMATION
  Report Type: Spontaneous
  Country: CA (occurrence: CA)
  Receive Date: 20131219
  Receipt Date: 20140120
  Transmission Date: 20141002
  Serious: Yes (Other)
  Sender: FDA-Public Use
  Company Number: CA-AMGEN-CANSP2013088648

PATIENT
  Age: 55 Year
  Sex: Male

DRUGS (3)
  1. ENBREL [Suspect]
     Indication: PSORIATIC ARTHROPATHY
     Dosage: 50 MG, UNK
     Route: 065
     Dates: start: 201204
  2. BETADERM                           /00008501/ [Concomitant]
     Dosage: UNK
  3. DOVOBET [Concomitant]
     Dosage: UNK

REACTIONS (2)
  - Hepatic cancer [Recovered/Resolved]
  - Injection site pain [Not Recovered/Not Resolved]
